FAERS Safety Report 15017551 (Version 1)
Quarter: 2018Q2

REPORT INFORMATION
  Report Type: Spontaneous
  Country: US (occurrence: US)
  Receive Date: 20180523
  Receipt Date: 20180523
  Transmission Date: 20180711
  Serious: Yes (Hospitalization, Disabling)
  Sender: FDA-Public Use
  Company Number: None

PATIENT
  Age: 25 Year
  Sex: Male
  Weight: 67.59 kg

DRUGS (1)
  1. KALETRA [Suspect]
     Active Substance: LOPINAVIR\RITONAVIR

REACTIONS (8)
  - Aggression [None]
  - Nightmare [None]
  - Illusion [None]
  - Confusional state [None]
  - Muscular weakness [None]
  - Paranoia [None]
  - Dyspnoea [None]
  - Body fat disorder [None]

NARRATIVE: CASE EVENT DATE: 20170701
